FAERS Safety Report 22179089 (Version 1)
Quarter: 2023Q2

REPORT INFORMATION
  Report Type: Report from Study
  Country: US (occurrence: US)
  Receive Date: 20230406
  Receipt Date: 20230406
  Transmission Date: 20230722
  Serious: No
  Sender: FDA-Public Use
  Company Number: US-002147023-NVSC2023US076120

PATIENT
  Sex: Female

DRUGS (2)
  1. CALCIPOTRIENE [Suspect]
     Active Substance: CALCIPOTRIENE
     Indication: Psoriasis
     Route: 065
  2. LIDEX [Suspect]
     Active Substance: FLUOCINONIDE
     Indication: Psoriasis
     Route: 065

REACTIONS (1)
  - Treatment failure [Unknown]
